FAERS Safety Report 5200022-7 (Version None)
Quarter: 2007Q1

REPORT INFORMATION
  Report Type: 
  Country: None (occurrence: None)
  Receive Date: 20070103
  Receipt Date: 20061221
  Transmission Date: 20070707
  Serious: Yes (Other)
  Sender: FDA-Public Use
  Company Number: 15314

PATIENT
  Age: 40 Year
  Sex: Female

DRUGS (6)
  1. METOCLOPRAMIDE [Suspect]
     Indication: NAUSEA
     Dosage: 10 MG IV
     Route: 042
  2. SULFAMETHOXAZOLE + TRIMETHOPRIM [Concomitant]
  3. ACYCLOVIR [Concomitant]
  4. ALLOPURINOL SODIUM [Concomitant]
  5. FAMOTIDINE [Concomitant]
  6. SERTRALINE [Concomitant]

REACTIONS (1)
  - CHOREA [None]
